FAERS Safety Report 20543042 (Version 1)
Quarter: 2022Q1

REPORT INFORMATION
  Report Type: Spontaneous
  Country: BR (occurrence: BR)
  Receive Date: 20220302
  Receipt Date: 20220302
  Transmission Date: 20220423
  Serious: Yes (Hospitalization, Disabling, Other)
  Sender: FDA-Public Use
  Company Number: BR-GKKIN-20190502-PI019535

PATIENT
  Age: 36 Year
  Sex: Male

DRUGS (4)
  1. CALCIUM CARBONATE [Suspect]
     Active Substance: CALCIUM CARBONATE
     Indication: Osteogenesis imperfecta
     Dosage: UNK, UNK
     Route: 048
  2. CHOLECALCIFEROL [Suspect]
     Active Substance: CHOLECALCIFEROL
     Indication: Osteogenesis imperfecta
     Dosage: UNK, UNK
     Route: 065
  3. CALCITRIOL [Suspect]
     Active Substance: CALCITRIOL
     Indication: Osteogenesis imperfecta
     Dosage: 70 MG, WEEKLY
     Route: 065
  4. ALENDRONIC ACID [Suspect]
     Active Substance: ALENDRONIC ACID
     Indication: Osteogenesis imperfecta
     Dosage: 70 MG, WEEKLY
     Route: 065

REACTIONS (7)
  - Nephrolithiasis [Recovering/Resolving]
  - Nephropathy [Recovering/Resolving]
  - Chronic kidney disease [Recovering/Resolving]
  - Hypophosphatasia [Recovering/Resolving]
  - Condition aggravated [Recovering/Resolving]
  - Nephrocalcinosis [Recovering/Resolving]
  - Renal cyst [Recovering/Resolving]
